FAERS Safety Report 14271036 (Version 1)
Quarter: 2017Q4

REPORT INFORMATION
  Report Type: Spontaneous
  Country: US (occurrence: US)
  Receive Date: 20171211
  Receipt Date: 20171211
  Transmission Date: 20180321
  Serious: Yes (Death)
  Sender: FDA-Public Use
  Company Number: US-BAYER-2017-234256

PATIENT
  Age: 61 Year
  Sex: Male

DRUGS (2)
  1. ACETYLSALICYLIC ACID (} 100 MG) [Suspect]
     Active Substance: ASPIRIN
     Dosage: 325 MG THROUGH A NASOGASTRIC TUBE
  2. BIVALIRUDIN. [Interacting]
     Active Substance: BIVALIRUDIN
     Dosage: 0.75 MG/KG, UNK
     Route: 042

REACTIONS (3)
  - Drug administration error [Fatal]
  - Labelled drug-drug interaction medication error [Fatal]
  - Pulmonary alveolar haemorrhage [Fatal]
